FAERS Safety Report 8259068 (Version 3)
Quarter: 2016Q2

REPORT INFORMATION
  Report Type: Spontaneous
  Country: CZ (occurrence: CZ)
  Receive Date: 20111122
  Receipt Date: 20160615
  Transmission Date: 20160815
  Serious: Yes (Other)
  Sender: FDA-Public Use
  Company Number: CZ-CELGENEUS-217-20785-11111272

PATIENT
  Age: 46 Year
  Sex: Male

DRUGS (9)
  1. THALIDOMIDE [Suspect]
     Active Substance: THALIDOMIDE
     Route: 048
     Dates: start: 201004
  2. CYCLOPHOSPHAMIDE. [Suspect]
     Active Substance: CYCLOPHOSPHAMIDE
     Indication: CASTLEMAN^S DISEASE
     Route: 048
     Dates: start: 200903, end: 201001
  3. CYCLOPHOSPHAMIDE. [Suspect]
     Active Substance: CYCLOPHOSPHAMIDE
     Route: 065
     Dates: start: 201004
  4. THALIDOMIDE [Suspect]
     Active Substance: THALIDOMIDE
     Indication: CASTLEMAN^S DISEASE
     Route: 048
     Dates: start: 200903, end: 201001
  5. THALIDOMIDE [Suspect]
     Active Substance: THALIDOMIDE
     Route: 048
  6. DEXAMETHASONE. [Suspect]
     Active Substance: DEXAMETHASONE
     Indication: CASTLEMAN^S DISEASE
     Route: 048
     Dates: start: 200903, end: 201001
  7. DEXAMETHASONE. [Suspect]
     Active Substance: DEXAMETHASONE
     Route: 065
     Dates: start: 201004
  8. TOCILIZUMAB [Concomitant]
     Active Substance: TOCILIZUMAB
     Indication: PRODUCT USED FOR UNKNOWN INDICATION
     Route: 041
     Dates: start: 201001
  9. CYCLOPHOSPHAMIDE. [Suspect]
     Active Substance: CYCLOPHOSPHAMIDE
     Route: 065
     Dates: start: 200812, end: 200902

REACTIONS (4)
  - Neuropathy peripheral [Unknown]
  - Cushing^s syndrome [Unknown]
  - Constipation [Unknown]
  - Fatigue [Unknown]
